FAERS Safety Report 7178467-8 (Version None)
Quarter: 2010Q4

REPORT INFORMATION
  Report Type: 
  Country: None (occurrence: None)
  Receive Date: 20101220
  Receipt Date: 20101207
  Transmission Date: 20110411
  Serious: Yes (Other)
  Sender: FDA-Public Use
  Company Number: PT-MERCK-1012PRT00001

PATIENT
  Age: 80 Year
  Sex: Female

DRUGS (6)
  1. FOSAMAX [Suspect]
     Route: 065
  2. LEVETIRACETAM [Concomitant]
     Route: 065
  3. ASPIRIN [Concomitant]
     Route: 048
  4. ATORVASTATIN CALCIUM [Concomitant]
     Route: 065
  5. PERINDOPRIL ERBUMINE [Concomitant]
     Route: 048
  6. CALCIUM (UNSPECIFIED) AND VITAMIN D (UNSPECIFIED) [Concomitant]
     Route: 065

REACTIONS (1)
  - DENTAL NECROSIS [None]
